FAERS Safety Report 4766702-2 (Version None)
Quarter: 2005Q3

REPORT INFORMATION
  Report Type: 
  Country: None (occurrence: None)
  Receive Date: 20050912
  Receipt Date: 20050830
  Transmission Date: 20060218
  Serious: Yes (Other)
  Sender: FDA-Public Use
  Company Number: 2005122754

PATIENT
  Sex: Female
  Weight: 72.5755 kg

DRUGS (15)
  1. DETROL LA CAPSULE, PROLONGED CAPSULE (TOLTERODINE L-TARTRATE) [Suspect]
     Indication: HYPERTONIC BLADDER
     Dosage: 4 MG (4 MG, DAILY INTERVAL: EVERYDAY), ORAL
     Route: 048
  2. PREDNISONE [Suspect]
     Dosage: 60 MG (20 MG, TID INTERVAL: EVERYDAY), ORAL
     Route: 048
  3. NEXIUM [Concomitant]
  4. HYOSCYAMINE [Concomitant]
  5. ALLEGRA [Concomitant]
  6. LISINOPRIL W/HYDROCHLOROTHIAZIDE (HYDROCHLOROTHIAZIDE, LISINOPRIL) [Concomitant]
  7. GABAPENTIN [Concomitant]
  8. ACIDOPHILUS (LACTOBACILLUS ACIDOPHILUS) [Concomitant]
  9. VITAMIN E [Concomitant]
  10. ASCORBIC ACID [Concomitant]
  11. MAGNESIUM [Concomitant]
  12. IMODIUM ADVANCED (LOPERAMIDE HYDROCHLORIDE, SIMETICONE) [Concomitant]
  13. CALCIUM CITRATE [Concomitant]
  14. MOBIC [Concomitant]
  15. TYLENOL [Concomitant]

REACTIONS (7)
  - DRY MOUTH [None]
  - MOBILITY DECREASED [None]
  - OEDEMA [None]
  - PAIN [None]
  - PRURITUS [None]
  - ROTATOR CUFF SYNDROME [None]
  - VAGINAL ODOUR [None]
